FAERS Safety Report 22863558 (Version 3)
Quarter: 2024Q4

REPORT INFORMATION
  Report Type: Spontaneous
  Country: US (occurrence: US)
  Receive Date: 20230825
  Receipt Date: 20241009
  Transmission Date: 20250114
  Serious: Yes (Hospitalization, Disabling)
  Sender: TEVA
  Company Number: US-TEVA-2023-US-2918621

PATIENT
  Age: 47 Year
  Sex: Male

DRUGS (1)
  1. ATORVASTATIN [Suspect]
     Active Substance: ATORVASTATIN
     Indication: Product used for unknown indication
     Route: 065

REACTIONS (3)
  - Immune-mediated myositis [Recovering/Resolving]
  - Gait inability [Recovering/Resolving]
  - Weight decreased [Recovering/Resolving]
